FAERS Safety Report 8584892-0 (Version None)
Quarter: 2012Q3

REPORT INFORMATION
  Report Type: 
  Country: None (occurrence: None)
  Receive Date: 20120810
  Receipt Date: 20120731
  Transmission Date: 20120928
  Serious: Yes (Life-Threatening, Other)
  Sender: FDA-Public Use
  Company Number: RO-JNJFOC-20120800581

PATIENT
  Sex: Female

DRUGS (2)
  1. REMICADE [Suspect]
     Route: 042
     Dates: start: 20100609, end: 20120725
  2. REMICADE [Suspect]
     Indication: ANKYLOSING SPONDYLITIS
     Route: 042
     Dates: start: 20120725, end: 20120725

REACTIONS (8)
  - TREMOR [None]
  - DYSPNOEA [None]
  - ERYTHEMA [None]
  - CHILLS [None]
  - NAUSEA [None]
  - INFUSION RELATED REACTION [None]
  - MALAISE [None]
  - CHEST DISCOMFORT [None]
